FAERS Safety Report 15357390 (Version 3)
Quarter: 2019Q1

REPORT INFORMATION
  Report Type: Spontaneous
  Country: US (occurrence: US)
  Receive Date: 20180906
  Receipt Date: 20190305
  Transmission Date: 20190417
  Serious: Yes (Hospitalization, Other)
  Sender: FDA-Public Use
  Company Number: US-GLAXOSMITHKLINE-US2018157114

PATIENT
  Sex: Female
  Weight: 81.65 kg

DRUGS (9)
  1. LAMOTRIGINE TABLET [Suspect]
     Active Substance: LAMOTRIGINE
     Indication: DEPRESSION
     Dosage: 200 MG, QD
     Dates: start: 2015, end: 201805
  2. SERTRALINE [Suspect]
     Active Substance: SERTRALINE HYDROCHLORIDE
     Indication: BIPOLAR DISORDER
  3. SEROQUEL [Suspect]
     Active Substance: QUETIAPINE FUMARATE
  4. SERTRALINE [Suspect]
     Active Substance: SERTRALINE HYDROCHLORIDE
     Indication: ANXIETY
  5. LAMICTAL [Suspect]
     Active Substance: LAMOTRIGINE
     Indication: PRODUCT USED FOR UNKNOWN INDICATION
  6. LAMOTRIGINE TABLET [Suspect]
     Active Substance: LAMOTRIGINE
     Indication: ANXIETY
  7. ZOLOFT [Suspect]
     Active Substance: SERTRALINE HYDROCHLORIDE
  8. SERTRALINE [Suspect]
     Active Substance: SERTRALINE HYDROCHLORIDE
     Indication: DEPRESSION
     Dosage: UNK UNK, QD
     Dates: start: 2015, end: 201805
  9. LAMOTRIGINE TABLET [Suspect]
     Active Substance: LAMOTRIGINE
     Indication: BIPOLAR DISORDER

REACTIONS (12)
  - Product substitution issue [Unknown]
  - Overdose [Unknown]
  - Nausea [Recovered/Resolved]
  - Stress [Unknown]
  - Gastric lavage [Unknown]
  - Drug ineffective [Unknown]
  - Feeling abnormal [Recovered/Resolved]
  - Ill-defined disorder [Unknown]
  - Visual impairment [Unknown]
  - Palpitations [Unknown]
  - Thinking abnormal [Unknown]
  - Mental disorder [Unknown]
